FAERS Safety Report 8374290-7 (Version None)
Quarter: 2012Q2

REPORT INFORMATION
  Report Type: 
  Country: None (occurrence: None)
  Receive Date: 20120521
  Receipt Date: 20120510
  Transmission Date: 20120825
  Serious: Yes (Hospitalization)
  Sender: FDA-Public Use
  Company Number: CH-ASTRAZENECA-2012SE30505

PATIENT
  Age: 68 Year
  Sex: Male

DRUGS (10)
  1. SEROQUEL [Suspect]
     Route: 048
     Dates: start: 20110727, end: 20110730
  2. SEROQUEL [Suspect]
     Route: 048
     Dates: start: 20110724, end: 20110726
  3. DIPIPERON [Concomitant]
     Route: 048
     Dates: start: 20110701
  4. DIPIPERON [Concomitant]
     Route: 048
     Dates: start: 20110814
  5. SEROQUEL [Suspect]
     Route: 048
     Dates: start: 20110805, end: 20110818
  6. DIPIPERON [Concomitant]
     Route: 048
     Dates: start: 20110905
  7. SEROQUEL [Suspect]
     Route: 048
     Dates: start: 20110722, end: 20110723
  8. SEROQUEL [Suspect]
     Route: 048
     Dates: start: 20110731, end: 20110804
  9. LANTUS [Concomitant]
     Dates: start: 20100101
  10. SEROQUEL [Suspect]
     Route: 048
     Dates: start: 20110819, end: 20110819

REACTIONS (1)
  - AGGRESSION [None]
